FAERS Safety Report 10968955 (Version 1)
Quarter: 2015Q1

REPORT INFORMATION
  Report Type: Spontaneous
  Country: UG (occurrence: UG)
  Receive Date: 20150331
  Receipt Date: 20150331
  Transmission Date: 20150721
  Serious: Yes (Death, Other)
  Sender: FDA-Public Use
  Company Number: UG-CIPLA LTD.-2015UG02489

PATIENT

DRUGS (5)
  1. LAMIVUDINE. [Suspect]
     Active Substance: LAMIVUDINE
     Indication: HIV INFECTION
  2. NEVIRAPINE. [Suspect]
     Active Substance: NEVIRAPINE
     Indication: HIV INFECTION
  3. PREDNISONE. [Concomitant]
     Active Substance: PREDNISONE
     Indication: HIV INFECTION
  4. TENOFOVIR DISOPROXIL FUMARATE [Suspect]
     Active Substance: TENOFOVIR DISOPROXIL FUMARATE
     Indication: HIV INFECTION
  5. DAPSONE. [Concomitant]
     Active Substance: DAPSONE
     Indication: HIV INFECTION

REACTIONS (5)
  - Pyuria [Unknown]
  - Protein urine present [Unknown]
  - Red blood cells urine [Unknown]
  - Oedema peripheral [Unknown]
  - Death [Fatal]
